FAERS Safety Report 7341618-6 (Version None)
Quarter: 2011Q1

REPORT INFORMATION
  Report Type: 
  Country: None (occurrence: None)
  Receive Date: 20110228
  Receipt Date: 20110211
  Transmission Date: 20110831
  Serious: Yes (Hospitalization)
  Sender: FDA-Public Use
  Company Number: 012246

PATIENT
  Age: 16 Year
  Sex: Male
  Weight: 87 kg

DRUGS (3)
  1. LEVETIRACETAM [Suspect]
     Indication: PARTIAL SEIZURES
     Dosage: (3000 MG) (4000 MG)
     Dates: end: 20070101
  2. LEVETIRACETAM [Suspect]
     Indication: PARTIAL SEIZURES
     Dosage: (3000 MG) (4000 MG)
     Dates: start: 20070101
  3. OXCARBAZEPINE [Concomitant]

REACTIONS (10)
  - ALANINE AMINOTRANSFERASE INCREASED [None]
  - FATIGUE [None]
  - FACIAL BONES FRACTURE [None]
  - ACNE [None]
  - CONCUSSION [None]
  - DISTURBANCE IN ATTENTION [None]
  - ROAD TRAFFIC ACCIDENT [None]
  - ASPARTATE AMINOTRANSFERASE INCREASED [None]
  - AGGRESSION [None]
  - DEPRESSION [None]
